FAERS Safety Report 6900564-X (Version None)
Quarter: 2010Q3

REPORT INFORMATION
  Report Type: 
  Country: None (occurrence: None)
  Receive Date: 20100803
  Receipt Date: 20100723
  Transmission Date: 20110219
  Serious: Yes (Other)
  Sender: FDA-Public Use
  Company Number: JP-PFIZER INC-2010092398

PATIENT
  Age: 73 Year
  Sex: Female

DRUGS (3)
  1. LIPITOR [Suspect]
     Indication: HYPERLIPIDAEMIA
     Dosage: 10 MG, 1X/DAY,UID
     Route: 048
     Dates: start: 20100604, end: 20100704
  2. OMEPRAL [Concomitant]
     Route: 048
  3. DIOVAN [Concomitant]
     Route: 048

REACTIONS (5)
  - DYSSTASIA [None]
  - HYPOAESTHESIA [None]
  - HYPOAESTHESIA ORAL [None]
  - MUSCULOSKELETAL PAIN [None]
  - SENSORY DISTURBANCE [None]
